FAERS Safety Report 11223882 (Version 3)
Quarter: 2016Q1

REPORT INFORMATION
  Report Type: Spontaneous
  Country: ES (occurrence: ES)
  Receive Date: 20150629
  Receipt Date: 20160105
  Transmission Date: 20160525
  Serious: Yes (Other)
  Sender: FDA-Public Use
  Company Number: ES-AMGEN-ESPSP2015052396

PATIENT
  Age: 58 Year
  Sex: Female

DRUGS (8)
  1. ENBREL [Suspect]
     Active Substance: ETANERCEPT
     Indication: RHEUMATOID ARTHRITIS
     Dosage: 50 MG, WEEKLY (EVERY WEDNESDAY)
     Route: 058
     Dates: start: 20150115
  2. ESOMEPRAZOL STADA                  /01479302/ [Concomitant]
     Indication: PROPHYLAXIS
     Dosage: 20 MG, 1X/DAY
  3. ENBREL [Suspect]
     Active Substance: ETANERCEPT
     Dosage: 50 MG, WEEKLY, ON WEDNESDAYS
     Route: 058
  4. LORAZEPAM. [Concomitant]
     Active Substance: LORAZEPAM
     Indication: SLEEP DISORDER
     Dosage: 1 MG, 1X/DAY (AT NIGHTS)
  5. ENBREL [Suspect]
     Active Substance: ETANERCEPT
     Dosage: 50 MG, WEEKLY
     Route: 058
  6. ENBREL [Suspect]
     Active Substance: ETANERCEPT
     Dosage: 50 MG, WEEKLY
     Route: 058
  7. OMEPRAZOLE. [Concomitant]
     Active Substance: OMEPRAZOLE
     Indication: PROPHYLAXIS
     Dosage: 1 DF, 1X/DAY
  8. LEVOGASTROL [Concomitant]
     Indication: DYSPEPSIA
     Dosage: 25 MG, 2X/DAY (1 BEFORE LUNCH, 1 BEFORE DINNER)

REACTIONS (7)
  - Injection site urticaria [Recovered/Resolved]
  - Tinnitus [Not Recovered/Not Resolved]
  - Injection site pain [Recovered/Resolved]
  - Vertigo [Not Recovered/Not Resolved]
  - Loss of consciousness [Unknown]
  - Fall [Unknown]
  - Ligament sprain [Not Recovered/Not Resolved]

NARRATIVE: CASE EVENT DATE: 2015
